FAERS Safety Report 4675324-3 (Version None)
Quarter: 2005Q2

REPORT INFORMATION
  Report Type: 
  Country: None (occurrence: None)
  Receive Date: 20050525
  Receipt Date: 20050517
  Transmission Date: 20051028
  Serious: Yes (Other)
  Sender: FDA-Public Use
  Company Number: 213215

PATIENT
  Sex: Female

DRUGS (2)
  1. HERCEPTIN [Suspect]
     Indication: BREAST CANCER METASTATIC
     Dosage: 1/WEEK, INTRAVENOUS
     Route: 042
  2. TAXOTERE [Concomitant]

REACTIONS (1)
  - BLINDNESS [None]
